FAERS Safety Report 11895028 (Version 1)
Quarter: 2016Q1

REPORT INFORMATION
  Report Type: Spontaneous
  Country: US (occurrence: None)
  Receive Date: 20160106
  Receipt Date: 20160106
  Transmission Date: 20160526
  Serious: Yes (Life-Threatening)
  Sender: FDA-Public Use
  Company Number: None

PATIENT
  Age: 31 Year
  Sex: Female
  Weight: 104.33 kg

DRUGS (8)
  1. ECT [Concomitant]
     Active Substance: UNSPECIFIED INGREDIENT
  2. DILUADUD [Concomitant]
  3. SAVELLA [Suspect]
     Active Substance: MILNACIPRAN HYDROCHLORIDE
     Indication: UNDIFFERENTIATED CONNECTIVE TISSUE DISEASE
     Dosage: 1 PILL
     Route: 048
     Dates: start: 20151124, end: 20151208
  4. PROTONIX [Concomitant]
     Active Substance: PANTOPRAZOLE SODIUM
  5. PLAQUENIL [Concomitant]
     Active Substance: HYDROXYCHLOROQUINE SULFATE
  6. TIZANIDINE. [Concomitant]
     Active Substance: TIZANIDINE
  7. TOPAMAX [Concomitant]
     Active Substance: TOPIRAMATE
  8. REGLAN [Concomitant]
     Active Substance: METOCLOPRAMIDE HYDROCHLORIDE

REACTIONS (6)
  - Urticaria [None]
  - Dyspnoea [None]
  - Peripheral swelling [None]
  - Limb discomfort [None]
  - Fall [None]
  - Joint swelling [None]

NARRATIVE: CASE EVENT DATE: 20151208
